FAERS Safety Report 9404090 (Version 1)
Quarter: 2013Q3

REPORT INFORMATION
  Report Type: Report from Study
  Country: US (occurrence: US)
  Receive Date: 20130717
  Receipt Date: 20130717
  Transmission Date: 20140515
  Serious: Yes (Other)
  Sender: FDA-Public Use
  Company Number: US-JNJFOC-20130705707

PATIENT
  Sex: Female

DRUGS (1)
  1. DOXORUBICIN HYDROCHLORIDE(DOXIL) [Suspect]
     Indication: OVARIAN CANCER
     Route: 042

REACTIONS (2)
  - Eye inflammation [Unknown]
  - Vision blurred [Unknown]
